FAERS Safety Report 5347014-5 (Version None)
Quarter: 2007Q2

REPORT INFORMATION
  Report Type: 
  Country: None (occurrence: None)
  Receive Date: 20070604
  Receipt Date: 20070523
  Transmission Date: 20071010
  Serious: No
  Sender: FDA-Public Use
  Company Number: FR-GUERBET-20070111

PATIENT
  Sex: Female

DRUGS (1)
  1. DOTAREM: / MEGLUMINE GADOTERATE [Suspect]
     Indication: NUCLEAR MAGNETIC RESONANCE IMAGING ABDOMINAL
     Dosage: INTRAVENOUS
     Route: 042
     Dates: start: 20070518

REACTIONS (2)
  - LOSS OF CONSCIOUSNESS [None]
  - VERTIGO [None]
